FAERS Safety Report 24094855 (Version 3)
Quarter: 2024Q3

REPORT INFORMATION
  Report Type: Spontaneous
  Country: CA (occurrence: CA)
  Receive Date: 20240716
  Receipt Date: 20240819
  Transmission Date: 20241017
  Serious: Yes (Hospitalization, Other)
  Sender: CELLTRION
  Company Number: CA-PFIZER INC-202400075589

PATIENT

DRUGS (5)
  1. INFLECTRA [Suspect]
     Active Substance: INFLIXIMAB-DYYB
     Indication: Crohn^s disease
     Dosage: 10 MG/KG, 0, 2, 6 THEN EVERY 8 WEEKS (WEEK 0, RECEIVED AT HOSPITAL)
     Route: 042
     Dates: start: 20240328, end: 20240328
  2. INFLECTRA [Suspect]
     Active Substance: INFLIXIMAB-DYYB
     Dosage: 300 MG, 0, 2, 6 THEN EVERY 8 WEEKS, (AT WEEK 2 AND 6 THEN Q 8 WEEKS)
     Route: 042
     Dates: start: 20240413, end: 20240413
  3. INFLECTRA [Suspect]
     Active Substance: INFLIXIMAB-DYYB
     Dosage: 300 MG (10MG/KG), 0, 2, 6 THEN EVERY 8 WEEKS (SUPPOSED TO RECEIVE 500 MG, REINDUCTION WEEK)
     Route: 042
     Dates: start: 20240511
  4. INFLECTRA [Suspect]
     Active Substance: INFLIXIMAB-DYYB
     Dosage: 500 MG, EVERY 8 WEEKS (10MG/KG REINDUCTION WEEK 2, 6 THEN MAINTENANCE EVERY 8 WEEKS)
     Route: 042
     Dates: start: 20240706
  5. INFLECTRA [Suspect]
     Active Substance: INFLIXIMAB-DYYB
     Dosage: 500 MG, EVERY 4 WEEK (AFTER 5 WEEKS)
     Route: 042
     Dates: start: 20240810

REACTIONS (7)
  - Condition aggravated [Recovered/Resolved]
  - Therapy non-responder [Unknown]
  - Headache [Recovered/Resolved]
  - Dyspepsia [Recovered/Resolved]
  - Off label use [Unknown]
  - Off label use [Unknown]
  - Incorrect dose administered [Unknown]

NARRATIVE: CASE EVENT DATE: 20240301
